FAERS Safety Report 21954762 (Version 1)
Quarter: 2023Q1

REPORT INFORMATION
  Report Type: Spontaneous
  Country: CA (occurrence: None)
  Receive Date: 20230205
  Receipt Date: 20230205
  Transmission Date: 20230418
  Serious: Yes (Other)
  Sender: FDA-Public Use
  Company Number: CA-ROCHE-3277151

PATIENT
  Age: 65 Year
  Sex: Male

DRUGS (2)
  1. OCRELIZUMAB [Suspect]
     Active Substance: OCRELIZUMAB
     Indication: Multiple sclerosis
     Route: 065
  2. PAXLOVID [Suspect]
     Active Substance: NIRMATRELVIR\RITONAVIR
     Indication: COVID-19 treatment
     Dosage: CONTAINS 5 BLISTER CARDS OF 4 NIRMATRELVIR AND 2 RITONAVIR TABLETS
     Route: 065

REACTIONS (2)
  - Drug interaction [Unknown]
  - Multiple sclerosis [Unknown]
